FAERS Safety Report 15677492 (Version 1)
Quarter: 2018Q4

REPORT INFORMATION
  Report Type: Report from Study
  Country: SG (occurrence: SG)
  Receive Date: 20181130
  Receipt Date: 20181130
  Transmission Date: 20190205
  Serious: Yes (Hospitalization)
  Sender: FDA-Public Use
  Company Number: PHHY2018SG049006

PATIENT
  Age: 58 Year
  Sex: Female
  Weight: 41.8 kg

DRUGS (6)
  1. CHOLINE SALICYLATE [Concomitant]
     Active Substance: CHOLINE SALICYLATE
     Indication: PROPHYLAXIS
     Dosage: 8.7 OT, UNK
     Route: 061
     Dates: start: 20180323, end: 20180326
  2. OMEPRAZOLE. [Concomitant]
     Active Substance: OMEPRAZOLE
     Dosage: 20 OT, UNK
     Route: 048
     Dates: start: 20180316
  3. VOTRIENT [Suspect]
     Active Substance: PAZOPANIB HYDROCHLORIDE
     Indication: RENAL CELL CARCINOMA
     Dosage: 800 MG, QD
     Route: 048
     Dates: start: 20180222, end: 20180313
  4. OMEPRAZOLE. [Concomitant]
     Active Substance: OMEPRAZOLE
     Indication: PROPHYLAXIS
     Dosage: 20 OT, UNK
     Route: 048
     Dates: start: 20160217, end: 20180315
  5. ACETAMINOPHEN. [Concomitant]
     Active Substance: ACETAMINOPHEN
     Indication: PRODUCT USED FOR UNKNOWN INDICATION
     Dosage: UNK
     Route: 065
  6. HEPARINOID [Concomitant]
     Active Substance: CHONDROITIN SULFATE (BOVINE)
     Indication: PROPHYLAXIS
     Dosage: 0.3 OT, UNK
     Route: 061
     Dates: start: 20180318, end: 20180326

REACTIONS (12)
  - Metastases to central nervous system [Recovering/Resolving]
  - Dizziness [Recovering/Resolving]
  - Renal cell carcinoma [Recovering/Resolving]
  - Diarrhoea [Not Recovered/Not Resolved]
  - Hypophosphataemia [Recovered/Resolved]
  - Malignant neoplasm progression [Recovering/Resolving]
  - Jaundice [Unknown]
  - Yellow skin [Recovered/Resolved]
  - Alanine aminotransferase increased [Recovered/Resolved]
  - Nausea [Recovered/Resolved]
  - Vomiting [Not Recovered/Not Resolved]
  - Blood alkaline phosphatase increased [Recovered/Resolved]

NARRATIVE: CASE EVENT DATE: 20180308
